FAERS Safety Report 12892214 (Version 1)
Quarter: 2016Q4

REPORT INFORMATION
  Report Type: Report from Study
  Country: CA (occurrence: CA)
  Receive Date: 20161028
  Receipt Date: 20161028
  Transmission Date: 20170207
  Serious: Yes (Hospitalization)
  Sender: FDA-Public Use
  Company Number: CA-ROCHE-1818008

PATIENT
  Age: 79 Year
  Sex: Male

DRUGS (7)
  1. PREDNISONE. [Concomitant]
     Active Substance: PREDNISONE
     Route: 065
  2. EMPRACET (ACETAMINOPHEN/CODEINE PHOSPHATE) [Concomitant]
  3. TIAZAC (CANADA) [Concomitant]
  4. ACTEMRA [Suspect]
     Active Substance: TOCILIZUMAB
     Route: 042
     Dates: start: 20160730
  5. ACTEMRA [Suspect]
     Active Substance: TOCILIZUMAB
     Indication: TEMPORAL ARTERITIS
     Dosage: LAST INFUSION OF TOCILIZUMAB WAS ON 30/JUN/2016
     Route: 042
     Dates: start: 20160505
  6. LYRICA [Concomitant]
     Active Substance: PREGABALIN
  7. PRADAX [Concomitant]
     Active Substance: DABIGATRAN ETEXILATE MESYLATE

REACTIONS (4)
  - Fall [Unknown]
  - Pulmonary embolism [Unknown]
  - Hip fracture [Unknown]
  - Pulmonary necrosis [Unknown]

NARRATIVE: CASE EVENT DATE: 201607
